FAERS Safety Report 26046293 (Version 2)
Quarter: 2025Q4

REPORT INFORMATION
  Report Type: Report from Study
  Country: BR (occurrence: None)
  Receive Date: 20251114
  Receipt Date: 20251125
  Transmission Date: 20260117
  Serious: Yes (Hospitalization, Other)
  Sender: UCB
  Company Number: BR-UCBSA-2025069178

PATIENT

DRUGS (1)
  1. CERTOLIZUMAB PEGOL [Suspect]
     Active Substance: CERTOLIZUMAB PEGOL
     Indication: Rheumatoid arthritis
     Dosage: UNK UNK, WEEKLY (QW)

REACTIONS (5)
  - Diverticulitis [Recovering/Resolving]
  - Pulmonary mass [Recovering/Resolving]
  - Pain [Recovering/Resolving]
  - Dyspnoea [Unknown]
  - Off label use [Unknown]
